FAERS Safety Report 5258351-7 (Version None)
Quarter: 2007Q1

REPORT INFORMATION
  Report Type: 
  Country: None (occurrence: None)
  Receive Date: 20061117
  Receipt Date: 20060410
  Transmission Date: 20070707
  Serious: Yes (Other)
  Sender: FDA-Public Use
  Company Number: JNJFOC-20060305029

PATIENT
  Age: 61 Year
  Sex: Female
  Weight: 80.2867 kg

DRUGS (1)
  1. LEVAQUIN [Suspect]
     Indication: SINUSITIS
     Dosage: 750 MG
     Dates: start: 20060301

REACTIONS (1)
  - VASCULITIS [None]
